FAERS Safety Report 12251874 (Version 1)
Quarter: 2016Q2

REPORT INFORMATION
  Report Type: Spontaneous
  Country: US (occurrence: US)
  Receive Date: 20160411
  Receipt Date: 20160411
  Transmission Date: 20160815
  Serious: Yes (Hospitalization)
  Sender: FDA-Public Use
  Company Number: US-009507513-1604USA001029

PATIENT
  Age: 13 Year
  Sex: Female

DRUGS (2)
  1. PREDNISONE. [Concomitant]
     Active Substance: PREDNISONE
     Dosage: 1 TABLET, TWICE DAILY
  2. PROVENTIL [Suspect]
     Active Substance: ALBUTEROL
     Indication: ASTHMA
     Dosage: 2 PUFFS USING A SPACER EVERY 4 HOURS, AS NEEDED
     Route: 055

REACTIONS (6)
  - Asthma [Not Recovered/Not Resolved]
  - Product container issue [Unknown]
  - Device malfunction [None]
  - Bronchitis [Recovering/Resolving]
  - Device breakage [None]
  - Underdose [Unknown]

NARRATIVE: CASE EVENT DATE: 2016
